FAERS Safety Report 14574324 (Version 3)
Quarter: 2018Q2

REPORT INFORMATION
  Report Type: Report from Study
  Country: None (occurrence: US)
  Receive Date: 20180226
  Receipt Date: 20180430
  Transmission Date: 20180711
  Serious: Yes (Other)
  Sender: FDA-Public Use
  Company Number: US-ABBVIE-18P-163-2265315-00

PATIENT

DRUGS (2)
  1. MAVYRET [Suspect]
     Active Substance: GLECAPREVIR\PIBRENTASVIR
     Indication: HEPATITIS C
     Route: 065
  2. FELODIPINE. [Concomitant]
     Active Substance: FELODIPINE
     Indication: PRODUCT USED FOR UNKNOWN INDICATION
     Dates: end: 201802

REACTIONS (16)
  - Tremor [Recovered/Resolved]
  - Nervousness [Recovering/Resolving]
  - Abdominal discomfort [Recovered/Resolved]
  - Neoplasm [Unknown]
  - Egocentrism [Unknown]
  - Insomnia [Recovering/Resolving]
  - Hand deformity [Unknown]
  - Feeling abnormal [Recovering/Resolving]
  - Amnesia [Recovering/Resolving]
  - Stress [Recovering/Resolving]
  - Pruritus [Not Recovered/Not Resolved]
  - Dysarthria [Recovered/Resolved]
  - Fatigue [Unknown]
  - Hypervigilance [Recovering/Resolving]
  - Vision blurred [Recovering/Resolving]
  - Rash [Not Recovered/Not Resolved]
